FAERS Safety Report 4540855-3 (Version None)
Quarter: 2004Q4

REPORT INFORMATION
  Report Type: 
  Country: None (occurrence: None)
  Receive Date: 20041229
  Receipt Date: 20041221
  Transmission Date: 20050328
  Serious: Yes (Disabling)
  Sender: FDA-Public Use
  Company Number: US-MERCK-0412USA02697

PATIENT
  Sex: Female

DRUGS (1)
  1. VIOXX [Suspect]
     Route: 048
     Dates: start: 19990101, end: 20021120

REACTIONS (2)
  - THROMBOSIS [None]
  - TRANSIENT ISCHAEMIC ATTACK [None]
